FAERS Safety Report 8556842-4 (Version None)
Quarter: 2012Q3

REPORT INFORMATION
  Report Type: 
  Country: None (occurrence: None)
  Receive Date: 20120801
  Receipt Date: 20120723
  Transmission Date: 20120928
  Serious: Yes (Hospitalization, Other)
  Sender: FDA-Public Use
  Company Number: FR-ASTRAZENECA-2012SE53230

PATIENT
  Age: 706 Month
  Sex: Female

DRUGS (6)
  1. CRESTOR [Suspect]
     Indication: HYPERCHOLESTEROLAEMIA
     Route: 048
     Dates: start: 20070101, end: 20120513
  2. SYMBICORT [Concomitant]
  3. ACETAMINOPHEN [Concomitant]
  4. SINGULAIR [Concomitant]
  5. IMATINIB MESYLATE [Suspect]
     Indication: MYELOPROLIFERATIVE DISORDER
     Route: 048
     Dates: start: 20120118, end: 20120522
  6. VENTOLIN [Concomitant]

REACTIONS (2)
  - CYTOLYTIC HEPATITIS [None]
  - MYELOPROLIFERATIVE DISORDER [None]
